FAERS Safety Report 11517024 (Version 1)
Quarter: 2015Q3

REPORT INFORMATION
  Report Type: Spontaneous
  Country: US (occurrence: US)
  Receive Date: 20150917
  Receipt Date: 20150917
  Transmission Date: 20151125
  Serious: No
  Sender: FDA-Public Use
  Company Number: US-MEDA-2015090028

PATIENT
  Sex: Male
  Weight: 77 kg

DRUGS (3)
  1. MUSE [Suspect]
     Active Substance: ALPROSTADIL
     Indication: ERECTILE DYSFUNCTION
     Route: 066
  2. METFORMIN [Concomitant]
     Active Substance: METFORMIN HYDROCHLORIDE
     Indication: TYPE 2 DIABETES MELLITUS
  3. GLIPIZIDE. [Concomitant]
     Active Substance: GLIPIZIDE
     Indication: TYPE 2 DIABETES MELLITUS
     Route: 048

REACTIONS (3)
  - Drug ineffective [Unknown]
  - Wrong technique in product usage process [Recovered/Resolved]
  - Product quality issue [Unknown]

NARRATIVE: CASE EVENT DATE: 2015
